FAERS Safety Report 4728732-6 (Version None)
Quarter: 2005Q3

REPORT INFORMATION
  Report Type: 
  Country: None (occurrence: None)
  Receive Date: 20050729
  Receipt Date: 20041228
  Transmission Date: 20060218
  Serious: Yes (Other)
  Sender: FDA-Public Use
  Company Number: US-GLAXOSMITHKLINE-A0538579A

PATIENT
  Age: 22 Year
  Sex: Male

DRUGS (4)
  1. PAXIL [Suspect]
     Indication: GENERALISED ANXIETY DISORDER
     Dosage: 10MG THREE TIMES PER DAY
     Route: 048
     Dates: start: 19980101
  2. PAROXETINE HCL [Suspect]
     Indication: GENERALISED ANXIETY DISORDER
     Dosage: 10MG THREE TIMES PER DAY
     Route: 048
     Dates: start: 20050701
  3. SEROQUEL [Concomitant]
  4. LORAZEPAM [Concomitant]

REACTIONS (21)
  - ANXIETY [None]
  - DENTAL CARIES [None]
  - DERMAL CYST [None]
  - DRUG WITHDRAWAL SYNDROME [None]
  - DRY MOUTH [None]
  - FEELING ABNORMAL [None]
  - FEELING JITTERY [None]
  - FLIGHT OF IDEAS [None]
  - HYPOAESTHESIA [None]
  - INCREASED APPETITE [None]
  - LOCAL SWELLING [None]
  - LOGORRHOEA [None]
  - MANIA [None]
  - PARAESTHESIA [None]
  - PERSONALITY CHANGE [None]
  - SKIN STRIAE [None]
  - TESTICULAR CYST [None]
  - THERAPEUTIC RESPONSE DECREASED [None]
  - TREMOR [None]
  - WEIGHT INCREASED [None]
  - WEIGHT LOSS POOR [None]
